FAERS Safety Report 14945666 (Version 1)
Quarter: 2018Q2

REPORT INFORMATION
  Report Type: Spontaneous
  Country: DE (occurrence: DE)
  Receive Date: 20180529
  Receipt Date: 20180529
  Transmission Date: 20180711
  Serious: Yes (Other)
  Sender: FDA-Public Use
  Company Number: DE-AUROBINDO-AUR-APL-2018-027685

PATIENT
  Age: 60 Year
  Sex: Female

DRUGS (2)
  1. LEVOFLOXACIN FILMCOATED TABLET [Suspect]
     Active Substance: LEVOFLOXACIN
     Indication: PROPHYLAXIS
     Dosage: 10 DOSAGE FORM,10 TABLETS A 500 MG
     Route: 065
     Dates: start: 201610
  2. LEVOFLOXACIN FILMCOATED TABLET [Suspect]
     Active Substance: LEVOFLOXACIN
     Indication: BRONCHITIS
     Dosage: 5 DOSAGE FORM, 250 MG 5 TABLETS
     Route: 065
     Dates: start: 201709

REACTIONS (12)
  - Palpitations [Recovered/Resolved]
  - Mood altered [Recovered/Resolved]
  - Mucosal dryness [Recovered/Resolved]
  - Pain in extremity [Not Recovered/Not Resolved]
  - Tendon pain [Not Recovered/Not Resolved]
  - Tinnitus [Recovered/Resolved]
  - Panic attack [Recovered/Resolved]
  - Visual impairment [Recovered/Resolved]
  - Extrasystoles [Recovered/Resolved]
  - Neuropathy peripheral [Recovered/Resolved]
  - Tendonitis [Recovered/Resolved]
  - Dry skin [Recovered/Resolved]
